FAERS Safety Report 10954854 (Version 3)
Quarter: 2015Q2

REPORT INFORMATION
  Report Type: Report from Study
  Country: US (occurrence: US)
  Receive Date: 20150325
  Receipt Date: 20150513
  Transmission Date: 20150821
  Serious: Yes (Hospitalization, Other)
  Sender: FDA-Public Use
  Company Number: US-GILEAD-2015-0144092

PATIENT
  Age: 82 Year
  Sex: Male
  Weight: 101.59 kg

DRUGS (17)
  1. LIPITOR [Concomitant]
     Active Substance: ATORVASTATIN CALCIUM
     Dosage: 20 MG, QD
     Route: 048
  2. LOPRESSOR [Concomitant]
     Active Substance: METOPROLOL TARTRATE
     Dosage: 25 MG, BID
  3. RANOLAZINE [Suspect]
     Active Substance: RANOLAZINE
     Indication: ANGINA PECTORIS
     Dosage: 1000 MG, BID
     Route: 048
     Dates: start: 20120604
  4. RANOLAZINE [Suspect]
     Active Substance: RANOLAZINE
     Dosage: 500 MG, BID
     Route: 048
  5. IMDUR [Concomitant]
     Active Substance: ISOSORBIDE MONONITRATE
     Dosage: 60 MG, QD
     Route: 048
  6. NITROSTAT [Concomitant]
     Active Substance: NITROGLYCERIN
     Indication: CHEST PAIN
     Dosage: 0.4 MG, EVERY 1 HOUR PRN
     Route: 060
  7. PROTONIX [Concomitant]
     Active Substance: PANTOPRAZOLE SODIUM
     Dosage: 40 MG, BID
     Route: 048
  8. COZAAR [Concomitant]
     Active Substance: LOSARTAN POTASSIUM
     Dosage: 50 MG, UNK
  9. LOPRESSOR [Concomitant]
     Active Substance: METOPROLOL TARTRATE
     Dosage: 50 UNK, UNK
  10. LOPID [Concomitant]
     Active Substance: GEMFIBROZIL
  11. POTASSIUM [Concomitant]
     Active Substance: POTASSIUM
  12. MICRONASE [Concomitant]
     Active Substance: GLYBURIDE
     Dosage: 2.5 MG, QD
     Route: 048
  13. PLAVIX [Concomitant]
     Active Substance: CLOPIDOGREL BISULFATE
     Dosage: 75 MG, QD
     Route: 048
  14. FORTAMET [Concomitant]
     Active Substance: METFORMIN HYDROCHLORIDE
     Dosage: 500 MG, QD
     Route: 048
  15. ASPIRIN                            /00002701/ [Concomitant]
     Active Substance: ASPIRIN
     Dosage: UNK MG, UNK
  16. LASIX [Concomitant]
     Active Substance: FUROSEMIDE
     Dosage: 40 MG, TWICE A WEEK
  17. INFLUENZA VACCINE [Concomitant]
     Active Substance: INFLUENZA VIRUS VACCINE
     Dosage: UNK
     Dates: start: 201409

REACTIONS (17)
  - Intermittent claudication [Unknown]
  - Anaemia [Unknown]
  - Arthralgia [Unknown]
  - Hypertensive emergency [Unknown]
  - Increased tendency to bruise [Unknown]
  - Treatment failure [Unknown]
  - Stent placement [Unknown]
  - Chest pain [Unknown]
  - Cerebrovascular accident [Recovered/Resolved]
  - Coronary artery disease [Not Recovered/Not Resolved]
  - Gastrointestinal haemorrhage [Unknown]
  - Myocardial infarction [Unknown]
  - Cardiac failure congestive [Unknown]
  - Partial seizures [Unknown]
  - Unevaluable event [Unknown]
  - Transient ischaemic attack [Unknown]
  - Angina pectoris [Unknown]

NARRATIVE: CASE EVENT DATE: 201212
